FAERS Safety Report 23998383 (Version 1)
Quarter: 2024Q2

REPORT INFORMATION
  Report Type: Report from Study
  Country: CA (occurrence: CA)
  Receive Date: 20240621
  Receipt Date: 20240621
  Transmission Date: 20240715
  Serious: Yes (Other)
  Sender: FDA-Public Use
  Company Number: CA-ABBVIE-5808088

PATIENT
  Age: 66 Year
  Sex: Male

DRUGS (2)
  1. RINVOQ [Suspect]
     Active Substance: UPADACITINIB
     Indication: Macular degeneration
     Dosage: FORM STRENGTH: 15 MILLIGRAM?LAST ADMIN DATE 2024
     Route: 048
     Dates: start: 20240318
  2. RINVOQ [Suspect]
     Active Substance: UPADACITINIB
     Indication: Macular degeneration
     Dosage: FORM STRENGTH: 15 MILLIGRAM
     Route: 048
     Dates: start: 20240617

REACTIONS (2)
  - Rotator cuff syndrome [Unknown]
  - Off label use [Unknown]

NARRATIVE: CASE EVENT DATE: 20240101
